FAERS Safety Report 17810755 (Version 1)
Quarter: 2020Q2

REPORT INFORMATION
  Report Type: Spontaneous
  Country: DE (occurrence: DE)
  Receive Date: 20200521
  Receipt Date: 20200521
  Transmission Date: 20200714
  Serious: Yes (Congenital Anomaly, Other)
  Sender: FDA-Public Use
  Company Number: DE-DRREDDYS-GER/GER/20/0123023

PATIENT
  Age: 1 Day
  Sex: Male
  Weight: 3.23 kg

DRUGS (5)
  1. ANTABUS [Suspect]
     Active Substance: DISULFIRAM
     Indication: PRODUCT USED FOR UNKNOWN INDICATION
     Dosage: 500 [MG/D (2 X/WK) ] 2 SEPARATED DOSES
     Route: 064
  2. FOLSAN [Concomitant]
     Active Substance: FOLIC ACID
     Indication: PRODUCT USED FOR UNKNOWN INDICATION
     Dosage: 5 [MG/D ]
     Route: 064
  3. EPHEDRIN [Concomitant]
     Active Substance: EPHEDRINE HYDROCHLORIDE
     Indication: PRODUCT USED FOR UNKNOWN INDICATION
     Dosage: IT WAS DETECTED IN DRUG SCREENING 3 MONTHS AFTER DELIVERY, UNKNOWN IF TAKEN DURING PREGNANCY
     Route: 064
  4. QUETIAPINE. [Suspect]
     Active Substance: QUETIAPINE
     Indication: PRODUCT USED FOR UNKNOWN INDICATION
     Dosage: 200 [MG/D (BIS 100 MG/D) ]
     Route: 064
     Dates: start: 20180828, end: 20190515
  5. SERTRALINE [Suspect]
     Active Substance: SERTRALINE HYDROCHLORIDE
     Indication: PRODUCT USED FOR UNKNOWN INDICATION
     Dosage: 100 [MG/D ]
     Route: 064
     Dates: start: 20180828, end: 20190515

REACTIONS (4)
  - Atrial septal defect [Recovered/Resolved]
  - Agitation neonatal [Recovered/Resolved]
  - Hypertonia neonatal [Recovered/Resolved]
  - Foetal exposure during pregnancy [Unknown]

NARRATIVE: CASE EVENT DATE: 20190515
